FAERS Safety Report 8534060-3 (Version None)
Quarter: 2012Q2

REPORT INFORMATION
  Report Type: 
  Country: None (occurrence: None)
  Receive Date: 20120629
  Receipt Date: 20120618
  Transmission Date: 20120825
  Serious: Yes (Other)
  Sender: FDA-Public Use
  Company Number: 2012032686

PATIENT
  Sex: Male
  Weight: 55.3388 kg

DRUGS (7)
  1. CELLCEPT [Suspect]
     Dosage: (500 MG BID ORAL)
     Route: 048
  2. PROGRAF [Concomitant]
  3. GANCICLOVIR [Concomitant]
  4. PREDNISONE [Concomitant]
  5. CAMPATH [Suspect]
     Indication: PREMEDICATION
     Dosage: (30 MG X 1 PDO#0 SUBCUTANEOUS)
     Route: 058
  6. BERINERT [Suspect]
     Indication: TRANSPLANT REJECTION
     Dosage: (1100 UNITS IVP OVER 6 MIN VIA SYRINGE PUMP), (1100 UNITS IVP OVER 6 MIN VIA SYRINGE PUMP)
     Route: 042
     Dates: start: 20120616
  7. BERINERT [Suspect]
     Indication: TRANSPLANT REJECTION
     Dosage: (1100 UNITS IVP OVER 6 MIN VIA SYRINGE PUMP), (1100 UNITS IVP OVER 6 MIN VIA SYRINGE PUMP)
     Route: 042
     Dates: start: 20120618

REACTIONS (12)
  - POST PROCEDURAL COMPLICATION [None]
  - THROMBOCYTOPENIA [None]
  - HAEMOGLOBIN DECREASED [None]
  - HAEMATOCRIT DECREASED [None]
  - WOUND SECRETION [None]
  - HYDRONEPHROSIS [None]
  - ASCITES [None]
  - CHOLELITHIASIS [None]
  - PLEURAL EFFUSION [None]
  - HAEMORRHAGE [None]
  - ATELECTASIS [None]
  - EMPHYSEMA [None]
